FAERS Safety Report 19515729 (Version 1)
Quarter: 2021Q3

REPORT INFORMATION
  Report Type: Spontaneous
  Country: US (occurrence: US)
  Receive Date: 20210709
  Receipt Date: 20210709
  Transmission Date: 20211014
  Serious: No
  Sender: FDA-Public Use
  Company Number: US-ASTELLAS-2020US033478

PATIENT
  Sex: Female
  Weight: 61 kg

DRUGS (1)
  1. MYRBETRIQ [Suspect]
     Active Substance: MIRABEGRON
     Indication: BLADDER SPASM
     Dosage: 50 MG, ONCE DAILY (DRINK WITH WATER 1 TABLET A  DAY IN THE MORNING)
     Route: 065
     Dates: end: 202007

REACTIONS (1)
  - Drug ineffective [Unknown]
